FAERS Safety Report 4309400-1 (Version None)
Quarter: 2004Q1

REPORT INFORMATION
  Report Type: 
  Country: None (occurrence: None)
  Receive Date: 20040302
  Receipt Date: 20040225
  Transmission Date: 20041129
  Serious: Yes (Other)
  Sender: FDA-Public Use
  Company Number: US-BRISTOL-MYERS SQUIBB COMPANY-12516902

PATIENT
  Age: 45 Year
  Sex: Female

DRUGS (5)
  1. GLUCOPHAGE XR [Suspect]
     Indication: DIABETES MELLITUS NON-INSULIN-DEPENDENT
     Route: 048
     Dates: start: 20031001
  2. DIOVAN [Concomitant]
     Dosage: FOR SEVERAL YEARS
  3. HYDROCHLOROTHIAZIDE [Concomitant]
  4. LANTUS [Concomitant]
     Dates: start: 20031001
  5. BETA-BLOCKER [Concomitant]

REACTIONS (1)
  - COLITIS COLLAGENOUS [None]
